FAERS Safety Report 6019243-9 (Version None)
Quarter: 2008Q4

REPORT INFORMATION
  Report Type: 
  Country: None (occurrence: None)
  Receive Date: 20081224
  Receipt Date: 20081223
  Transmission Date: 20090506
  Serious: Yes (Hospitalization)
  Sender: FDA-Public Use
  Company Number: US-BRISTOL-MYERS SQUIBB COMPANY-14426787

PATIENT
  Age: 76 Year
  Sex: Female
  Weight: 57 kg

DRUGS (5)
  1. COUMADIN [Suspect]
     Dosage: TAKING GREEN TABS ON MONDAYS AND FRIDAYS AND 2.5 MG ON OTHER DAYS.
     Dates: start: 20071201
  2. VERAPAMIL [Concomitant]
  3. DIGOXIN [Concomitant]
  4. THYROID TAB [Concomitant]
  5. CHOLESTEROL MEDICATION [Concomitant]
     Indication: BLOOD CHOLESTEROL

REACTIONS (4)
  - ARTHRITIS [None]
  - FALL [None]
  - HIP FRACTURE [None]
  - JOINT SWELLING [None]
